FAERS Safety Report 23671683 (Version 1)
Quarter: 2024Q1

REPORT INFORMATION
  Report Type: Report from Study
  Country: US (occurrence: US)
  Receive Date: 20240326
  Receipt Date: 20240326
  Transmission Date: 20240409
  Serious: Yes (Other)
  Sender: FDA-Public Use
  Company Number: US-UCBSA-2024009366

PATIENT
  Age: 67 Year
  Sex: Female

DRUGS (1)
  1. CERTOLIZUMAB PEGOL [Suspect]
     Active Substance: CERTOLIZUMAB PEGOL
     Indication: Rheumatoid arthritis
     Dosage: 400 MILLIGRAM, EV 4 WEEKS
     Dates: start: 20230717, end: 20240215

REACTIONS (8)
  - Rheumatoid arthritis [Unknown]
  - Gastrointestinal disorder [Unknown]
  - Cough [Unknown]
  - Abdominal discomfort [Unknown]
  - Headache [Unknown]
  - Alopecia [Unknown]
  - Diarrhoea [Unknown]
  - Exostosis [Unknown]

NARRATIVE: CASE EVENT DATE: 20230701
